FAERS Safety Report 15386475 (Version 2)
Quarter: 2019Q3

REPORT INFORMATION
  Report Type: Report from Study
  Country: CH (occurrence: CH)
  Receive Date: 20180914
  Receipt Date: 20190918
  Transmission Date: 20191004
  Serious: Yes (Hospitalization)
  Sender: FDA-Public Use
  Company Number: CH-SAKK-2018SA156131AA

PATIENT
  Age: 72 Year
  Sex: Male
  Weight: 67 kg

DRUGS (4)
  1. CABAZITAXEL [Suspect]
     Active Substance: CABAZITAXEL
     Dosage: 20 MG/M2, QCY
     Route: 042
     Dates: start: 20180503, end: 20180503
  2. CABAZITAXEL [Suspect]
     Active Substance: CABAZITAXEL
     Indication: PROSTATE CANCER METASTATIC
     Dosage: 20 MG/M2, QCY
     Route: 042
     Dates: start: 20180412, end: 20180412
  3. CABAZITAXEL [Suspect]
     Active Substance: CABAZITAXEL
     Dosage: 15.3 MG/M2
     Route: 042
     Dates: start: 20180524, end: 20180524
  4. CIPROXIN [CIPROFLOXACIN HYDROCHLORIDE] [Concomitant]
     Active Substance: CIPROFLOXACIN HYDROCHLORIDE
     Indication: DIVERTICULITIS
     Dosage: 1000 MG
     Route: 048
     Dates: start: 20180515, end: 20180603

REACTIONS (4)
  - Large intestine perforation [Recovered/Resolved]
  - Neutrophil count decreased [Recovered/Resolved]
  - Diarrhoea [Not Recovered/Not Resolved]
  - Constipation [Recovered/Resolved]

NARRATIVE: CASE EVENT DATE: 20180515
